FAERS Safety Report 10457829 (Version 3)
Quarter: 2014Q4

REPORT INFORMATION
  Report Type: Spontaneous
  Country: US (occurrence: US)
  Receive Date: 20140916
  Receipt Date: 20141111
  Transmission Date: 20150528
  Serious: Yes (Death, Hospitalization, Other)
  Sender: FDA-Public Use
  Company Number: US-GLAXOSMITHKLINE-A1089115A

PATIENT
  Age: 78 Year
  Sex: Male

DRUGS (10)
  1. PROMACTA [Suspect]
     Active Substance: ELTROMBOPAG OLAMINE
     Indication: IMMUNE THROMBOCYTOPENIC PURPURA
     Dosage: 25 MG, 50 MG AND 75 MG TABLETS
  2. KEPPRA [Concomitant]
     Active Substance: LEVETIRACETAM
  3. CARVEDILOL. [Concomitant]
     Active Substance: CARVEDILOL
  4. NARCOTICS (UNSPECIFIED) [Suspect]
     Active Substance: UNSPECIFIED INGREDIENT
     Dosage: UNK, U
     Route: 065
  5. MARINOL [Concomitant]
     Active Substance: DRONABINOL
  6. LEVOTHYROXINE [Concomitant]
     Active Substance: LEVOTHYROXINE
  7. PREDNISONE. [Concomitant]
     Active Substance: PREDNISONE
  8. OXYGEN. [Concomitant]
     Active Substance: OXYGEN
  9. LISINOPRIL. [Concomitant]
     Active Substance: LISINOPRIL
  10. ELTROMBOPAG [Suspect]
     Active Substance: ELTROMBOPAG
     Indication: IMMUNE THROMBOCYTOPENIC PURPURA
     Dosage: UNK, U
     Route: 065

REACTIONS (32)
  - Lymphocytic leukaemia [Fatal]
  - Sepsis [Unknown]
  - Immune thrombocytopenic purpura [Unknown]
  - Decreased appetite [Unknown]
  - Musculoskeletal pain [Recovered/Resolved]
  - Dry skin [Unknown]
  - Drug ineffective [Unknown]
  - Delirium [Unknown]
  - Pain [Recovered/Resolved]
  - Eye discharge [Unknown]
  - Dyspnoea [Unknown]
  - Wheezing [Unknown]
  - Staphylococcus test positive [Unknown]
  - Arrhythmia [Unknown]
  - Confusional state [Unknown]
  - Skin exfoliation [Unknown]
  - Pancytopenia [Unknown]
  - Subarachnoid haemorrhage [Unknown]
  - General physical health deterioration [Unknown]
  - Hospice care [Recovered/Resolved]
  - Eye infection [Unknown]
  - Dry mouth [Unknown]
  - Localised infection [Unknown]
  - Ocular hyperaemia [Unknown]
  - Gastrointestinal sounds abnormal [Unknown]
  - Urinary tract infection [Unknown]
  - Anxiety [Recovered/Resolved]
  - Contusion [Unknown]
  - Neutropenia [Unknown]
  - Terminal state [Not Recovered/Not Resolved]
  - Pyrexia [Recovered/Resolved]
  - Oedema peripheral [Unknown]

NARRATIVE: CASE EVENT DATE: 20140407
